FAERS Safety Report 5510654-4 (Version None)
Quarter: 2007Q4

REPORT INFORMATION
  Report Type: 
  Country: None (occurrence: None)
  Receive Date: 20071108
  Receipt Date: 20071029
  Transmission Date: 20080405
  Serious: No
  Sender: FDA-Public Use
  Company Number: US-BOEHRINGER INGELHEIM PHARMACEUTICALS, INC.-2007-BP-20108BP

PATIENT
  Age: 78 Year
  Sex: Male

DRUGS (6)
  1. ATROVENT HFA [Suspect]
     Indication: CHRONIC OBSTRUCTIVE PULMONARY DISEASE
     Route: 055
     Dates: start: 20060901
  2. ATROVENT HFA [Suspect]
     Indication: EMPHYSEMA
  3. SEREVENT [Concomitant]
  4. FLUOXETINE [Concomitant]
     Indication: DEPRESSION
  5. FINASTERIDE [Concomitant]
     Indication: PROSTATIC DISORDER
  6. OXYGEN [Concomitant]

REACTIONS (3)
  - DYSPNOEA [None]
  - THERAPEUTIC RESPONSE DECREASED [None]
  - THERAPY REGIMEN CHANGED [None]
